FAERS Safety Report 16972679 (Version 2)
Quarter: 2019Q4

REPORT INFORMATION
  Report Type: Spontaneous
  Country: JP (occurrence: JP)
  Receive Date: 20191030
  Receipt Date: 20191217
  Transmission Date: 20200122
  Serious: Yes (Other)
  Sender: FDA-Public Use
  Company Number: JP-MTPC-MTPC2019-0076016

PATIENT

DRUGS (7)
  1. RADICUT BAG FOR I.V. INFUSION 30MG [Suspect]
     Active Substance: EDARAVONE
     Indication: CEREBRAL ARTERY EMBOLISM
     Dosage: 30 MILLIGRAM, BID
     Route: 041
     Dates: start: 20191010, end: 20191017
  2. IOPAMIRON [Suspect]
     Active Substance: IOPAMIDOL
     Indication: BRAIN OPERATION
     Dosage: 100 MILLILITER, QD
     Route: 041
     Dates: start: 20191010
  3. MEROPENEM. [Concomitant]
     Active Substance: MEROPENEM
     Indication: PYELONEPHRITIS
     Dosage: 0.5 GRAM, BID
     Route: 041
     Dates: start: 20191016, end: 20191018
  4. ELIQUIS [Concomitant]
     Active Substance: APIXABAN
     Indication: EMBOLIC STROKE
     Dosage: 2.5 MILLIGRAM, BID
     Route: 048
     Dates: start: 20191011
  5. AMLODIPINE [Concomitant]
     Active Substance: AMLODIPINE BESYLATE
     Indication: HYPERTENSION
     Dosage: 2.5 MILLIGRAM, QD
     Route: 048
     Dates: start: 20191012
  6. TAKECAB [Concomitant]
     Active Substance: VONOPRAZAN FUMURATE
     Indication: GASTROOESOPHAGEAL REFLUX DISEASE
     Dosage: 10 MILLIGRAM, QD
     Route: 048
     Dates: start: 20191011, end: 20191101
  7. LANSOPRAZOLE. [Concomitant]
     Active Substance: LANSOPRAZOLE
     Indication: GASTROOESOPHAGEAL REFLUX DISEASE
     Dosage: 15 MILLIGRAM, QD
     Route: 048
     Dates: start: 20191102

REACTIONS (1)
  - Renal impairment [Recovering/Resolving]

NARRATIVE: CASE EVENT DATE: 20191017
